FAERS Safety Report 8607756-2 (Version None)
Quarter: 2012Q3

REPORT INFORMATION
  Report Type: 
  Country: None (occurrence: None)
  Receive Date: 20120821
  Receipt Date: 20120814
  Transmission Date: 20120928
  Serious: Yes (Hospitalization, Other)
  Sender: FDA-Public Use
  Company Number: PHHY2012BR071498

PATIENT
  Sex: Male
  Weight: 74 kg

DRUGS (2)
  1. FORMOTEROL FUMARATE [Suspect]
     Indication: DYSPNOEA
  2. FORMOTEROL FUMARATE [Suspect]
     Indication: ASTHMA
     Dosage: ONE INHALATION WITH EACH TREATMENT DAILY

REACTIONS (10)
  - CHEST PAIN [None]
  - CYANOSIS [None]
  - HEART RATE INCREASED [None]
  - CONVULSION [None]
  - DIZZINESS [None]
  - NAUSEA [None]
  - HYPOXIA [None]
  - INFARCTION [None]
  - ARRHYTHMIA [None]
  - HYPOTENSION [None]
